FAERS Safety Report 24039985 (Version 1)
Quarter: 2024Q3

REPORT INFORMATION
  Report Type: Spontaneous
  Country: CH (occurrence: CH)
  Receive Date: 20240702
  Receipt Date: 20240702
  Transmission Date: 20241017
  Serious: Yes (Life-Threatening, Hospitalization)
  Sender: ACCORD
  Company Number: CH-MLMSERVICE-20240614-PI100425-00095-1

PATIENT
  Age: 68 Year
  Sex: Male

DRUGS (4)
  1. HYDROXYCHLOROQUINE [Suspect]
     Active Substance: HYDROXYCHLOROQUINE
     Indication: Haematological infection
     Dates: start: 202210, end: 202301
  2. DOXYCYCLINE [Concomitant]
     Active Substance: DOXYCYCLINE\DOXYCYCLINE HYCLATE
     Indication: Q fever
     Dates: start: 202210
  3. DOXYCYCLINE [Concomitant]
     Active Substance: DOXYCYCLINE\DOXYCYCLINE HYCLATE
     Indication: Haematological infection
     Dates: start: 202210
  4. HYDROXYCHLOROQUINE [Suspect]
     Active Substance: HYDROXYCHLOROQUINE
     Indication: Q fever
     Dates: start: 202210, end: 202301

REACTIONS (5)
  - Hepatic failure [Unknown]
  - Cardiogenic shock [Recovered/Resolved]
  - Heart failure with reduced ejection fraction [Recovered/Resolved]
  - Renal failure [Unknown]
  - Dilated cardiomyopathy [Recovered/Resolved]

NARRATIVE: CASE EVENT DATE: 20230101
